FAERS Safety Report 24278178 (Version 1)
Quarter: 2024Q3

REPORT INFORMATION
  Report Type: Spontaneous
  Country: NO (occurrence: None)
  Receive Date: 20240903
  Receipt Date: 20240903
  Transmission Date: 20241016
  Serious: Yes (Hospitalization, Other)
  Sender: ASTRAZENECA
  Company Number: 2024A193824

PATIENT
  Age: 59 Year
  Sex: Male

DRUGS (6)
  1. NEXIUM [Suspect]
     Active Substance: ESOMEPRAZOLE MAGNESIUM
     Indication: Gastritis
     Route: 048
     Dates: start: 20010419, end: 20010428
  2. NEXIUM [Suspect]
     Active Substance: ESOMEPRAZOLE MAGNESIUM
     Indication: Helicobacter infection
     Route: 048
     Dates: start: 20010419, end: 20010428
  3. AMOXICILLIN [Suspect]
     Active Substance: AMOXICILLIN
     Indication: Gastritis
     Dosage: 1000 MILLIGRAM, 2/DAY
     Route: 048
     Dates: start: 20010419, end: 20010428
  4. AMOXICILLIN [Suspect]
     Active Substance: AMOXICILLIN
     Indication: Helicobacter infection
     Dosage: 1000 MILLIGRAM, 2/DAY
     Route: 048
     Dates: start: 20010419, end: 20010428
  5. CLARITHROMYCIN [Suspect]
     Active Substance: CLARITHROMYCIN
     Indication: Helicobacter infection
     Dosage: 500 MILLIGRAM, 2/DAY
     Route: 048
     Dates: start: 20010419, end: 20010428
  6. CLARITHROMYCIN [Suspect]
     Active Substance: CLARITHROMYCIN
     Indication: Gastritis
     Dosage: 500 MILLIGRAM, 2/DAY
     Route: 048
     Dates: start: 20010419, end: 20010428

REACTIONS (7)
  - Oedema [Recovering/Resolving]
  - Rash maculo-papular [Recovering/Resolving]
  - Angioedema [Recovering/Resolving]
  - Hypersensitivity [Recovering/Resolving]
  - Dysphagia [Recovering/Resolving]
  - Dysphonia [Recovering/Resolving]
  - Dyspnoea [Recovering/Resolving]

NARRATIVE: CASE EVENT DATE: 20010427
